FAERS Safety Report 8426821-6 (Version None)
Quarter: 2012Q2

REPORT INFORMATION
  Report Type: 
  Country: None (occurrence: None)
  Receive Date: 20120611
  Receipt Date: 20120601
  Transmission Date: 20120825
  Serious: Yes (Hospitalization, Other)
  Sender: FDA-Public Use
  Company Number: US-ABBOTT-12P-163-0941468-00

PATIENT
  Sex: Male

DRUGS (6)
  1. REMICADE [Concomitant]
     Indication: ANKYLOSING SPONDYLITIS
  2. HUMIRA [Suspect]
     Indication: ANKYLOSING SPONDYLITIS
     Dates: end: 20120101
  3. BLOOD PRESSURE MEDICATION [Concomitant]
     Indication: HYPERTENSION
  4. BLOOD PRESSURE MEDICATION [Concomitant]
  5. ENBREL [Concomitant]
     Indication: ANKYLOSING SPONDYLITIS
  6. BLOOD PRESSURE MEDICATION [Concomitant]

REACTIONS (17)
  - ARTHRALGIA [None]
  - ANAEMIA [None]
  - VISION BLURRED [None]
  - CEREBROVASCULAR ACCIDENT [None]
  - MULTIPLE SCLEROSIS [None]
  - GAIT DISTURBANCE [None]
  - IMPAIRED WORK ABILITY [None]
  - CSF OLIGOCLONAL BAND [None]
  - VASCULITIS [None]
  - AUTOIMMUNE DISORDER [None]
  - HOT FLUSH [None]
  - HYPERTENSION [None]
  - CENTRAL NERVOUS SYSTEM LESION [None]
  - DIZZINESS [None]
  - FEELING ABNORMAL [None]
  - HYPOAESTHESIA [None]
  - FATIGUE [None]
